FAERS Safety Report 23719028 (Version 1)
Quarter: 2024Q2

REPORT INFORMATION
  Report Type: Spontaneous
  Country: GB (occurrence: GB)
  Receive Date: 20240408
  Receipt Date: 20240408
  Transmission Date: 20240716
  Serious: Yes (Other)
  Sender: FDA-Public Use
  Company Number: GB-GLAXOSMITHKLINE-GB2024EME038332

PATIENT
  Age: 74 Year
  Sex: Female

DRUGS (2)
  1. SUMATRIPTAN [Suspect]
     Active Substance: SUMATRIPTAN
     Indication: Migraine
     Dosage: 50 MILLIGRAM, BID (50 MG, BID, 50MG IN THE MORNING AND 50MG IN THE EVENING)
     Route: 065
  2. AJOVY [Concomitant]
     Active Substance: FREMANEZUMAB-VFRM
     Indication: Migraine
     Dosage: UNK
     Route: 065

REACTIONS (4)
  - Drug dependence [Not Recovered/Not Resolved]
  - Migraine [Not Recovered/Not Resolved]
  - Headache [Not Recovered/Not Resolved]
  - Pain [Unknown]
